FAERS Safety Report 12913223 (Version 5)
Quarter: 2018Q2

REPORT INFORMATION
  Report Type: Spontaneous
  Country: RU (occurrence: RU)
  Receive Date: 20161104
  Receipt Date: 20180515
  Transmission Date: 20180711
  Serious: Yes (Other)
  Sender: FDA-Public Use
  Company Number: RU-ASTRAZENECA-2016SF13869

PATIENT
  Age: 77 Year
  Sex: Female

DRUGS (11)
  1. EPLERENONE. [Concomitant]
     Active Substance: EPLERENONE
  2. RANEXA [Concomitant]
     Active Substance: RANOLAZINE
  3. CRESTOR [Concomitant]
     Active Substance: ROSUVASTATIN CALCIUM
  4. BRILINTA [Suspect]
     Active Substance: TICAGRELOR
     Indication: ANGINA UNSTABLE
     Route: 048
     Dates: start: 201512
  5. CARDIOMAGNYL [Concomitant]
     Active Substance: ASPIRIN\MAGNESIUM HYDROXIDE
  6. TRIGRIM [Concomitant]
  7. PHLEBODIA [Concomitant]
     Active Substance: DIOSMIN
  8. BRILINTA [Suspect]
     Active Substance: TICAGRELOR
     Indication: STENT PLACEMENT
     Route: 048
     Dates: start: 201512
  9. CONCOR [Concomitant]
     Active Substance: BISOPROLOL FUMARATE
  10. EDARBI [Concomitant]
     Active Substance: AZILSARTAN KAMEDOXOMIL
  11. PREDUCTAL MR [Concomitant]
     Active Substance: TRIMETAZIDINE DIHYDROCHLORIDE

REACTIONS (16)
  - Dyspnoea [Not Recovered/Not Resolved]
  - Injection site abscess [Recovered/Resolved]
  - Oedema peripheral [Not Recovered/Not Resolved]
  - Off label use [Not Recovered/Not Resolved]
  - Blood pressure decreased [Unknown]
  - Lacrimation increased [Not Recovered/Not Resolved]
  - Contusion [Not Recovered/Not Resolved]
  - Angina pectoris [Unknown]
  - Blood pressure increased [Not Recovered/Not Resolved]
  - Viral upper respiratory tract infection [Recovering/Resolving]
  - Muscle spasms [Not Recovered/Not Resolved]
  - Dizziness [Unknown]
  - Contusion [Not Recovered/Not Resolved]
  - Product use issue [Not Recovered/Not Resolved]
  - Vascular occlusion [Unknown]
  - Headache [Not Recovered/Not Resolved]

NARRATIVE: CASE EVENT DATE: 201512
